FAERS Safety Report 5683893-X (Version None)
Quarter: 2008Q1

REPORT INFORMATION
  Report Type: 
  Country: None (occurrence: None)
  Receive Date: 20080327
  Receipt Date: 20080327
  Transmission Date: 20080703
  Serious: Yes (Hospitalization)
  Sender: FDA-Public Use
  Company Number: None

PATIENT
  Age: 59 Year
  Sex: Male

DRUGS (6)
  1. RITUXAN [Suspect]
     Indication: MANTLE CELL LYMPHOMA
  2. THALIDOMIDE [Suspect]
     Indication: MANTLE CELL LYMPHOMA
  3. PREDNISONE [Suspect]
     Indication: MANTLE CELL LYMPHOMA
  4. ETOPOSIDE [Suspect]
     Indication: MANTLE CELL LYMPHOMA
  5. PROCARBAZINE [Suspect]
     Indication: MANTLE CELL LYMPHOMA
  6. CYCLOPHOSPHAMIDE [Suspect]
     Indication: MANTLE CELL LYMPHOMA

REACTIONS (1)
  - PULMONARY EMBOLISM [None]
